FAERS Safety Report 8869815 (Version 1)
Quarter: 2012Q4

REPORT INFORMATION
  Report Type: 
  Country: US (occurrence: US)
  Receive Date: 20121026
  Receipt Date: 20121026
  Transmission Date: 20130627
  Serious: No
  Sender: FDA-Public Use
  Company Number: US-AMGEN-USASP2012044211

PATIENT
  Age: 38 Year
  Sex: Female
  Weight: 56.69 kg

DRUGS (8)
  1. ENBREL [Suspect]
     Indication: PRODUCT USED FOR UNKNOWN INDICATION
     Dosage: 50 mg, qwk
     Route: 058
  2. LABETALOL [Concomitant]
     Dosage: 100 mg, UNK
  3. BENZONATATE [Concomitant]
     Dosage: 100 mg, UNK
  4. BENICAR [Concomitant]
     Dosage: 20 mg, UNK
  5. PREDNISONE [Concomitant]
     Dosage: 1 mg, UNK
  6. TOPAMAX [Concomitant]
     Dosage: 25 mg, UNK
  7. CYMBALTA [Concomitant]
     Dosage: 20 mg, UNK
  8. HYDROCORT                          /00028602/ [Concomitant]
     Dosage: CRE 0.5%

REACTIONS (2)
  - Cyst [Unknown]
  - Injection site rash [Unknown]
